FAERS Safety Report 17740348 (Version 3)
Quarter: 2020Q2

REPORT INFORMATION
  Report Type: Spontaneous
  Country: US (occurrence: US)
  Receive Date: 20200504
  Receipt Date: 20200611
  Transmission Date: 20200714
  Serious: No
  Sender: FDA-Public Use
  Company Number: US-PFIZER INC-2020177791

PATIENT
  Age: 47 Year
  Sex: Female

DRUGS (1)
  1. IBRANCE [Suspect]
     Active Substance: PALBOCICLIB
     Indication: BREAST CANCER FEMALE
     Dosage: 125 MG, ONCE DAILY ON DAYS 1 TO 21, FOLLOWED BY 7 DAYS REST, REPEATED EVERY 28 DAYS
     Route: 048
     Dates: start: 20200414

REACTIONS (4)
  - Arthralgia [Unknown]
  - Rash pruritic [Unknown]
  - Back pain [Unknown]
  - Product dose omission [Unknown]
